FAERS Safety Report 9834657 (Version 2)
Quarter: 2014Q1

REPORT INFORMATION
  Report Type: Spontaneous
  Country: US (occurrence: US)
  Receive Date: 20140122
  Receipt Date: 20140127
  Transmission Date: 20141002
  Serious: Yes (Other)
  Sender: FDA-Public Use
  Company Number: US-BAYER-2014-006883

PATIENT
  Age: 29 Year
  Sex: Female

DRUGS (3)
  1. MIRENA [Suspect]
     Indication: CONTRACEPTION
     Dosage: 20 MCG/24HR, CONT
     Route: 015
     Dates: start: 20121124
  2. DOCUSATE SODIUM [Concomitant]
  3. IBUPROFEN [Concomitant]

REACTIONS (11)
  - Uterine perforation [None]
  - Ectopic pregnancy with contraceptive device [None]
  - Drug ineffective [None]
  - Scar [None]
  - Infertility female [None]
  - Internal injury [None]
  - Injury [None]
  - Emotional distress [None]
  - Deformity [None]
  - Pain [None]
  - Anhedonia [None]
